FAERS Safety Report 8789788 (Version 5)
Quarter: 2012Q4

REPORT INFORMATION
  Report Type: 
  Country: US (occurrence: US)
  Receive Date: 20120917
  Receipt Date: 20121123
  Transmission Date: 20130627
  Serious: Yes (Other)
  Sender: FDA-Public Use
  Company Number: US-PFIZER INC-2012226537

PATIENT
  Age: 45 Year
  Sex: Male
  Weight: 119 kg

DRUGS (6)
  1. PROTONIX [Suspect]
     Indication: GASTROESOPHAGEAL REFLUX DISEASE
     Dosage: UNK
     Dates: start: 20110613
  2. PROTONIX [Suspect]
     Dosage: 40 mg, 1x/day
     Route: 048
     Dates: end: 201207
  3. ARTHROTEC [Suspect]
     Dosage: UNK
  4. HYDROMORPHONE [Concomitant]
     Dosage: UNK
  5. CORGARD [Concomitant]
     Dosage: UNK
  6. ALBUTEROL [Concomitant]
     Dosage: UNK

REACTIONS (5)
  - Hepatic cancer [Unknown]
  - Coma [Unknown]
  - Hepatic encephalopathy [Unknown]
  - Thrombocytopenia [Unknown]
  - Abdominal distension [Unknown]
